FAERS Safety Report 20346086 (Version 1)
Quarter: 2022Q1

REPORT INFORMATION
  Report Type: Spontaneous
  Country: US (occurrence: US)
  Receive Date: 20220118
  Receipt Date: 20220118
  Transmission Date: 20220423
  Serious: No
  Sender: FDA-Public Use
  Company Number: US-MMM-UC9R2YWD

PATIENT
  Age: 71 Year
  Sex: Female

DRUGS (1)
  1. LAMICTAL XR [Suspect]
     Active Substance: LAMOTRIGINE
     Indication: Seizure
     Dosage: 250 MG, QD
     Dates: start: 20180101

REACTIONS (1)
  - Product selection error [Recovered/Resolved]

NARRATIVE: CASE EVENT DATE: 20220113
